FAERS Safety Report 5652577-6 (Version None)
Quarter: 2008Q1

REPORT INFORMATION
  Report Type: 
  Country: None (occurrence: None)
  Receive Date: 20080131
  Receipt Date: 20071005
  Transmission Date: 20080703
  Serious: No
  Sender: FDA-Public Use
  Company Number: US200710001957

PATIENT
  Age: 48 Year
  Sex: Female

DRUGS (4)
  1. BYETTA [Suspect]
     Indication: TYPE 2 DIABETES MELLITUS
     Dosage: D/F
  2. EXUBERA (INSULIN) [Concomitant]
  3. LANTUS [Concomitant]
  4. SYMLIN [Concomitant]

REACTIONS (4)
  - DYSPHAGIA [None]
  - DYSPNOEA [None]
  - NODULE [None]
  - VOMITING [None]
